FAERS Safety Report 7268567-6 (Version None)
Quarter: 2011Q1

REPORT INFORMATION
  Report Type: 
  Country: None (occurrence: None)
  Receive Date: 20110201
  Receipt Date: 20110124
  Transmission Date: 20110831
  Serious: No
  Sender: FDA-Public Use
  Company Number: US-B.I. PHARMACEUTICALS,INC./RIDGEFIELD-2010-BP-14531PF

PATIENT
  Sex: Female
  Weight: 58.96 kg

DRUGS (8)
  1. SPIRIVA [Suspect]
     Indication: CHRONIC OBSTRUCTIVE PULMONARY DISEASE
  2. VYTORIN [Concomitant]
     Indication: BLOOD CHOLESTEROL ABNORMAL
     Route: 048
  3. TYLENOL PM [Concomitant]
  4. SPIRIVA [Suspect]
     Indication: EMPHYSEMA
  5. ADVAIR [Suspect]
     Indication: CHRONIC OBSTRUCTIVE PULMONARY DISEASE
     Dosage: 1100 MCG
  6. CHANTIX [Suspect]
     Indication: SMOKING CESSATION THERAPY
  7. CHANTIX [Suspect]
     Dosage: 0.5 MG
     Dates: start: 20101210
  8. LISINOPRIL [Concomitant]
     Indication: BLOOD PRESSURE ABNORMAL
     Dosage: 20 MG

REACTIONS (5)
  - MOUTH ULCERATION [None]
  - PRURITUS [None]
  - INFECTION [None]
  - NAIL DISORDER [None]
  - BRONCHITIS [None]
